FAERS Safety Report 5162935-4 (Version None)
Quarter: 2006Q4

REPORT INFORMATION
  Report Type: 
  Country: None (occurrence: None)
  Receive Date: 20061201
  Receipt Date: 20061122
  Transmission Date: 20070319
  Serious: Yes (Hospitalization)
  Sender: FDA-Public Use
  Company Number: GB-ROCHE-472258

PATIENT
  Age: 60 Year
  Sex: Female

DRUGS (5)
  1. CAPECITABINE [Suspect]
     Route: 048
     Dates: start: 20060915, end: 20061013
  2. LAPATINIB [Suspect]
     Route: 048
     Dates: start: 20060915, end: 20061013
  3. OXYCODONE HCL [Suspect]
     Route: 065
     Dates: end: 20061014
  4. PERCOCET [Concomitant]
     Route: 065
  5. ZOLPIDEM TARTRATE [Concomitant]

REACTIONS (9)
  - AMMONIA INCREASED [None]
  - ASTHENIA [None]
  - CONFUSIONAL STATE [None]
  - DECREASED APPETITE [None]
  - FALL [None]
  - LETHARGY [None]
  - MENTAL STATUS CHANGES [None]
  - ORAL INTAKE REDUCED [None]
  - WEIGHT DECREASED [None]
